FAERS Safety Report 12466353 (Version 1)
Quarter: 2016Q2

REPORT INFORMATION
  Report Type: Spontaneous
  Country: US (occurrence: US)
  Receive Date: 20160615
  Receipt Date: 20160615
  Transmission Date: 20160815
  Serious: Yes (Hospitalization, Other)
  Sender: FDA-Public Use
  Company Number: US-AUROBINDO-AUR-APL-2012-00765

PATIENT

DRUGS (1)
  1. LEVETIRACETAM TABLETS 250 MG [Suspect]
     Active Substance: LEVETIRACETAM
     Indication: SEIZURE
     Dosage: 250 MG,TWO TIMES A DAY,
     Route: 048

REACTIONS (11)
  - Fatigue [Recovered/Resolved]
  - Renal impairment [Recovered/Resolved]
  - Back pain [Recovered/Resolved]
  - Acute kidney injury [Recovered/Resolved]
  - Diarrhoea [Recovered/Resolved]
  - Stenosis [Recovered/Resolved]
  - Tubulointerstitial nephritis [Recovered/Resolved]
  - Abdominal pain [Recovered/Resolved]
  - Pallor [Recovered/Resolved]
  - Vomiting [Recovered/Resolved]
  - Hydronephrosis [Recovered/Resolved]
